FAERS Safety Report 7766674-2 (Version None)
Quarter: 2011Q3

REPORT INFORMATION
  Report Type: 
  Country: None (occurrence: None)
  Receive Date: 20110922
  Receipt Date: 20110914
  Transmission Date: 20111222
  Serious: Yes (Other)
  Sender: FDA-Public Use
  Company Number: JP-JNJFOC-20110900911

PATIENT
  Age: 71 Year
  Sex: Male

DRUGS (6)
  1. TRAMADOL HYDROCHLORIDE/ACETAMINOPHEN [Suspect]
     Dosage: 2 DF ONCE A DAY
     Route: 048
     Dates: start: 20110810
  2. TRAMADOL HYDROCHLORIDE/ACETAMINOPHEN [Suspect]
     Indication: PAIN
     Dosage: 3 DF ONCE A DAY
     Route: 048
     Dates: start: 20110819
  3. DOPS [Concomitant]
     Dosage: 3 DF ONCE A DAY
     Route: 048
     Dates: start: 20110802, end: 20110905
  4. COMTAN [Concomitant]
     Dosage: 3 DF ONCE A DAY
     Route: 048
     Dates: start: 20110802, end: 20110905
  5. PROCHLORPERAZINE [Concomitant]
     Dosage: 2 DF ONCE A DAY
     Route: 048
     Dates: start: 20110810
  6. PROCHLORPERAZINE [Concomitant]
     Dosage: 3 DF ONCE A DAY
     Route: 048

REACTIONS (1)
  - EYELID PTOSIS [None]
